FAERS Safety Report 9479538 (Version 1)
Quarter: 2013Q3

REPORT INFORMATION
  Report Type: Spontaneous
  Country: ES (occurrence: ES)
  Receive Date: 20130827
  Receipt Date: 20130827
  Transmission Date: 20140515
  Serious: Yes (Other)
  Sender: FDA-Public Use
  Company Number: ES-B.I. PHARMACEUTICALS,INC./RIDGEFIELD-2013-ES-00500ES

PATIENT
  Age: 87 Year
  Sex: Male

DRUGS (5)
  1. PRADAXA [Suspect]
     Indication: PROPHYLAXIS
     Dosage: 220 MG
     Route: 048
     Dates: start: 201112
  2. TAMSULOSINA [Concomitant]
     Dosage: 0.4 MG
     Route: 048
  3. PANTOPRAZOL [Concomitant]
     Dosage: 20 MG
     Route: 048
  4. DILTIAZEM [Concomitant]
     Dosage: 120 MG
     Route: 048
  5. ZYLORIC [Concomitant]
     Dosage: 300 MG
     Route: 048

REACTIONS (1)
  - Monarthritis [Not Recovered/Not Resolved]
